FAERS Safety Report 18063986 (Version 1)
Quarter: 2020Q3

REPORT INFORMATION
  Report Type: Report from Study
  Country: FR (occurrence: FR)
  Receive Date: 20200724
  Receipt Date: 20200724
  Transmission Date: 20201103
  Serious: Yes (Disabling)
  Sender: FDA-Public Use
  Company Number: FR-TEVA-2020-FR-1805369

PATIENT
  Sex: Female
  Weight: 80 kg

DRUGS (3)
  1. TRAMADOL. [Suspect]
     Active Substance: TRAMADOL
     Dosage: COULD TAKE FOUR TABLETS OF TRAMADOL IN CASE OF MIGRAINE CRISIS.
     Route: 048
  2. NOCERTONE [Concomitant]
     Active Substance: OXETORONE
     Indication: MIGRAINE
     Dosage: 1 DOSAGE FORMS DAILY;
     Route: 048
     Dates: start: 201603, end: 201712
  3. TRAMADOL. [Suspect]
     Active Substance: TRAMADOL
     Indication: MIGRAINE
     Dosage: THREE TABLETS PER DAY
     Route: 048
     Dates: start: 201603, end: 201712

REACTIONS (8)
  - Nausea [Unknown]
  - Vertigo [Unknown]
  - Hot flush [Unknown]
  - Malaise [Unknown]
  - Vision blurred [Unknown]
  - Feeling abnormal [Unknown]
  - Vomiting [Unknown]
  - Feeling drunk [Unknown]
